FAERS Safety Report 6012302-6 (Version None)
Quarter: 2008Q4

REPORT INFORMATION
  Report Type: 
  Country: None (occurrence: None)
  Receive Date: 20081218
  Receipt Date: 20081106
  Transmission Date: 20090506
  Serious: No
  Sender: FDA-Public Use
  Company Number: US-ASTRAZENECA-2008UW24964

PATIENT
  Age: 22 Month
  Sex: Female

DRUGS (4)
  1. SYMBICORT [Suspect]
     Dosage: 80/4.5
     Route: 055
  2. XOPENEX [Concomitant]
  3. ZANTAC/ATOPICLAIR [Concomitant]
  4. SINGULAIR [Concomitant]

REACTIONS (2)
  - AGGRESSION [None]
  - SLEEP TERROR [None]
